FAERS Safety Report 23213723 (Version 1)
Quarter: 2023Q4

REPORT INFORMATION
  Report Type: Spontaneous
  Country: US (occurrence: US)
  Receive Date: 20231121
  Receipt Date: 20231121
  Transmission Date: 20240109
  Serious: Yes (Other)
  Sender: FDA-Public Use
  Company Number: US-INTRA-CELLULAR THERAPIES, INC.-2023ICT01648

PATIENT
  Sex: Female

DRUGS (2)
  1. CAPLYTA [Suspect]
     Active Substance: LUMATEPERONE
     Dosage: 10.5 MG
     Dates: start: 2023, end: 2023
  2. CAPLYTA [Suspect]
     Active Substance: LUMATEPERONE
     Dosage: 21 MG
     Dates: start: 2023

REACTIONS (5)
  - Psychotic disorder [Unknown]
  - Catatonia [Unknown]
  - Hallucination, auditory [Unknown]
  - Paranoia [Unknown]
  - Flat affect [Unknown]

NARRATIVE: CASE EVENT DATE: 20230101
